FAERS Safety Report 6057094-X (Version None)
Quarter: 2009Q1

REPORT INFORMATION
  Report Type: 
  Country: None (occurrence: None)
  Receive Date: 20090129
  Receipt Date: 20090123
  Transmission Date: 20090719
  Serious: Yes (Death)
  Sender: FDA-Public Use
  Company Number: US-GILEAD-2008-0019144

PATIENT
  Sex: Male
  Weight: 94.886 kg

DRUGS (18)
  1. LETAIRIS [Suspect]
     Indication: PULMONARY ARTERIAL HYPERTENSION
     Route: 048
     Dates: start: 20081023
  2. COUMADIN [Concomitant]
  3. LASIX [Concomitant]
  4. DILTIAZEM [Concomitant]
  5. DIGOXIN [Concomitant]
  6. ASPIRIN [Concomitant]
  7. ALBUTEROL [Concomitant]
  8. THEOPHYLLINE [Concomitant]
  9. PREDNISONE [Concomitant]
  10. PULMICORT-100 [Concomitant]
  11. CLARITIN-D [Concomitant]
  12. COLACE [Concomitant]
  13. VALIUM [Concomitant]
  14. AVODART [Concomitant]
  15. SENNA S [Concomitant]
  16. NYSTATIN [Concomitant]
  17. POTASSIUM CHLORIDE [Concomitant]
  18. FLOMAX [Concomitant]

REACTIONS (1)
  - DEATH [None]
